FAERS Safety Report 4482604-3 (Version None)
Quarter: 2004Q4

REPORT INFORMATION
  Report Type: 
  Country: None (occurrence: None)
  Receive Date: 20041022
  Receipt Date: 20041014
  Transmission Date: 20050328
  Serious: Yes (Other)
  Sender: FDA-Public Use
  Company Number: GB-JNJFOC-20041004002

PATIENT
  Age: 8 Year
  Sex: Male
  Weight: 34 kg

DRUGS (1)
  1. CONCERTA [Suspect]
     Route: 049
     Dates: start: 20041001, end: 20041004

REACTIONS (3)
  - ABNORMAL BEHAVIOUR [None]
  - AGGRESSION [None]
  - DISINHIBITION [None]
